FAERS Safety Report 8289700-3 (Version None)
Quarter: 2012Q2

REPORT INFORMATION
  Report Type: 
  Country: None (occurrence: None)
  Receive Date: 20120417
  Receipt Date: 20120410
  Transmission Date: 20120825
  Serious: Yes (Other)
  Sender: FDA-Public Use
  Company Number: BR-US-EMD SERONO, INC.-7125462

PATIENT
  Sex: Male

DRUGS (9)
  1. REBIF [Suspect]
     Indication: RELAPSING-REMITTING MULTIPLE SCLEROSIS
     Dates: start: 20070101
  2. ZETIA [Concomitant]
     Indication: PRODUCT USED FOR UNKNOWN INDICATION
  3. LIPTOR (LIPITOR) [Concomitant]
     Indication: PRODUCT USED FOR UNKNOWN INDICATION
  4. ATENOLOL [Concomitant]
     Indication: PRODUCT USED FOR UNKNOWN INDICATION
  5. ASPIRIN [Concomitant]
     Indication: PRODUCT USED FOR UNKNOWN INDICATION
  6. CLOPIDOGREL [Concomitant]
     Indication: PRODUCT USED FOR UNKNOWN INDICATION
  7. VASTAREL [Concomitant]
     Indication: PRODUCT USED FOR UNKNOWN INDICATION
  8. TEGRETOL [Concomitant]
     Indication: PRODUCT USED FOR UNKNOWN INDICATION
  9. CALTRATE+ VITAMIN D [Concomitant]
     Indication: PRODUCT USED FOR UNKNOWN INDICATION

REACTIONS (9)
  - ASTHENIA [None]
  - FATIGUE [None]
  - SUBARACHNOID HAEMORRHAGE [None]
  - DIPLOPIA [None]
  - INJECTION SITE HAEMATOMA [None]
  - SENSATION OF HEAVINESS [None]
  - CONSTIPATION [None]
  - INJECTION SITE NODULE [None]
  - FALL [None]
